FAERS Safety Report 10014630 (Version 3)
Quarter: 2014Q2

REPORT INFORMATION
  Report Type: Report from Study
  Country: TR (occurrence: TR)
  Receive Date: 20140317
  Receipt Date: 20140625
  Transmission Date: 20141212
  Serious: Yes (Hospitalization)
  Sender: FDA-Public Use
  Company Number: TR-BAYER-2014-026706

PATIENT
  Age: 66 Year
  Sex: Male
  Weight: 94 kg

DRUGS (7)
  1. REGORAFENIB [Suspect]
     Indication: COLORECTAL CANCER METASTATIC
     Dosage: 160 MG, QD, 40 X 4
     Route: 048
     Dates: start: 20140124, end: 20140213
  2. DIOVAN [Concomitant]
     Indication: HYPERTENSION
     Dosage: 160 MG, QD
     Route: 048
     Dates: start: 201101, end: 20140205
  3. DIOVAN [Concomitant]
     Indication: HYPERTENSION
     Dosage: 320 MG, QD
     Route: 048
     Dates: start: 20140206
  4. FLUDEX [Concomitant]
     Indication: HYPERTENSION
     Dosage: 1.5 MG, QD
     Route: 048
     Dates: start: 20140124
  5. NORVASC [Concomitant]
     Indication: HYPERTENSION
     Dosage: 10 MG, QD
     Dates: start: 20140127
  6. OMNIPAQUE [Concomitant]
     Indication: COMPUTERISED TOMOGRAM
     Dosage: 350 MG/100 CC
     Route: 048
     Dates: start: 20140117, end: 20140117
  7. AMARYL [Concomitant]
     Indication: DIABETES MELLITUS
     Dosage: 1 MG/DAY
     Route: 048
     Dates: start: 2000

REACTIONS (1)
  - Cerebral ischaemia [Recovering/Resolving]
